FAERS Safety Report 7654814-5 (Version None)
Quarter: 2011Q3

REPORT INFORMATION
  Report Type: 
  Country: None (occurrence: None)
  Receive Date: 20110804
  Receipt Date: 20110801
  Transmission Date: 20111222
  Serious: Yes (Other)
  Sender: FDA-Public Use
  Company Number: US-TEVA-294430USA

PATIENT
  Sex: Female

DRUGS (1)
  1. AMPHETAMINE W/DEXTROAMPHETAMINE [Suspect]

REACTIONS (12)
  - AGITATION [None]
  - MANIA [None]
  - AGGRESSION [None]
  - DEPRESSION [None]
  - DRUG EFFECT INCREASED [None]
  - STRESS [None]
  - SUICIDE ATTEMPT [None]
  - INTENTIONAL OVERDOSE [None]
  - ANGER [None]
  - ANXIETY [None]
  - RESTLESSNESS [None]
  - PERSONALITY CHANGE [None]
